FAERS Safety Report 9912874 (Version 1)
Quarter: 2014Q1

REPORT INFORMATION
  Report Type: Spontaneous
  Country: US (occurrence: US)
  Receive Date: 20140220
  Receipt Date: 20140220
  Transmission Date: 20141002
  Serious: No
  Sender: FDA-Public Use
  Company Number: US-PFIZER INC-2014047585

PATIENT
  Age: 71 Year
  Sex: Male

DRUGS (6)
  1. CELEBREX [Suspect]
     Indication: ARTHRALGIA
     Dosage: UNK
  2. CELEBREX [Suspect]
     Indication: NECK PAIN
  3. CELEBREX [Suspect]
     Indication: MUSCULOSKELETAL PAIN
  4. MOBIC [Suspect]
     Indication: ARTHRALGIA
     Dosage: UNK
  5. MOBIC [Suspect]
     Indication: NECK PAIN
  6. MOBIC [Suspect]
     Indication: MUSCULOSKELETAL PAIN

REACTIONS (1)
  - Drug effect incomplete [Unknown]
